FAERS Safety Report 8894142 (Version 2)
Quarter: 2013Q2

REPORT INFORMATION
  Report Type: Report from Study
  Country: JP (occurrence: JP)
  Receive Date: 20121108
  Receipt Date: 20130513
  Transmission Date: 20140414
  Serious: No
  Sender: FDA-Public Use
  Company Number: JP-009507513-1211JPN001762

PATIENT
  Age: 65 Year
  Sex: Female
  Weight: 57 kg

DRUGS (11)
  1. PEGINTRON [Suspect]
     Indication: CHRONIC HEPATITIS C
     Dosage: 1.5 MICROGRAM PER KILOGRAM, UNK
     Route: 058
     Dates: start: 20120730
  2. PEGINTRON [Suspect]
     Dosage: 80 MICROGRAM, QW
     Route: 058
     Dates: end: 20120918
  3. PEGINTRON [Suspect]
     Dosage: 50 MICROGRAM, QW
     Route: 058
     Dates: start: 20120919, end: 20120925
  4. PEGINTRON [Suspect]
     Dosage: 40 MICROGRAM, QW
     Route: 058
     Dates: start: 20120926
  5. REBETOL [Suspect]
     Indication: CHRONIC HEPATITIS C
     Dosage: 600 MG, QD
     Route: 048
     Dates: start: 20120730, end: 20120810
  6. REBETOL [Suspect]
     Dosage: 200 MG, QD
     Route: 048
     Dates: start: 20120811
  7. TELAVIC [Suspect]
     Indication: CHRONIC HEPATITIS C
     Dosage: 750 MG, BID
     Route: 048
     Dates: start: 20120730, end: 20120912
  8. TELAVIC [Suspect]
     Dosage: 500 MG, BID
     Route: 048
     Dates: start: 20120912, end: 20120925
  9. TELAVIC [Suspect]
     Dosage: 250 MG, BID
     Route: 048
     Dates: start: 20120926, end: 20121024
  10. FAMOTIDINE [Concomitant]
     Indication: PROPHYLAXIS
     Dosage: 20 MG, QD
     Route: 048
     Dates: start: 20120730
  11. JUZEN-TAIHO-TO [Concomitant]
     Indication: PROPHYLAXIS
     Dosage: 7.5 G, QD
     Route: 048
     Dates: start: 20120730

REACTIONS (2)
  - Renal impairment [Recovering/Resolving]
  - Haemoglobin decreased [Recovered/Resolved]
